FAERS Safety Report 25363442 (Version 1)
Quarter: 2025Q2

REPORT INFORMATION
  Report Type: Spontaneous
  Country: AU (occurrence: None)
  Receive Date: 20250527
  Receipt Date: 20250527
  Transmission Date: 20250716
  Serious: Yes (Disabling)
  Sender: FDA-CTU
  Company Number: None

PATIENT
  Age: 50 Year
  Sex: Female
  Weight: 81 kg

DRUGS (11)
  1. OZEMPIC [Suspect]
     Active Substance: SEMAGLUTIDE
     Indication: Diabetes mellitus
     Route: 058
     Dates: start: 20220102, end: 20241230
  2. ZOLOFT [Concomitant]
     Active Substance: SERTRALINE HYDROCHLORIDE
  3. DIABEX [Suspect]
     Active Substance: METFORMIN HYDROCHLORIDE
  4. ROSUVASTATIN [Concomitant]
     Active Substance: ROSUVASTATIN
  5. PERINDOPRIL [Concomitant]
     Active Substance: PERINDOPRIL
  6. AMLODIPINE [Concomitant]
     Active Substance: AMLODIPINE BESYLATE
  7. PREGABALIN [Concomitant]
     Active Substance: PREGABALIN
  8. BACLOFEN [Concomitant]
     Active Substance: BACLOFEN
  9. LYRICA [Concomitant]
     Active Substance: PREGABALIN
  10. COENZYME Q10 [Concomitant]
     Active Substance: DIETARY SUPPLEMENT\UBIDECARENONE
  11. Iron Hair Nail Calcium + Vit D [Concomitant]

REACTIONS (11)
  - Arthralgia [None]
  - Neck pain [None]
  - Arthralgia [None]
  - Muscle spasms [None]
  - Vision blurred [None]
  - Visual impairment [None]
  - Gait disturbance [None]
  - Insomnia [None]
  - Back pain [None]
  - Medial tibial stress syndrome [None]
  - Loss of personal independence in daily activities [None]

NARRATIVE: CASE EVENT DATE: 20230701
